FAERS Safety Report 6848783-5 (Version None)
Quarter: 2010Q3

REPORT INFORMATION
  Report Type: 
  Country: None (occurrence: None)
  Receive Date: 20100716
  Receipt Date: 20070912
  Transmission Date: 20110219
  Serious: No
  Sender: FDA-Public Use
  Company Number: US-PFIZER INC-2007076646

PATIENT
  Sex: Female
  Weight: 63.6 kg

DRUGS (5)
  1. CHANTIX [Suspect]
     Indication: SMOKING CESSATION THERAPY
     Route: 048
     Dates: start: 20070801, end: 20070801
  2. ENTOCORT EC [Concomitant]
  3. PREDNISONE [Concomitant]
  4. GLUCOSAMINE [Concomitant]
  5. CELEXA [Concomitant]

REACTIONS (2)
  - NAUSEA [None]
  - VOMITING [None]
